FAERS Safety Report 8521251-0 (Version None)
Quarter: 2012Q3

REPORT INFORMATION
  Report Type: 
  Country: None (occurrence: None)
  Receive Date: 20120712
  Receipt Date: 20120712
  Transmission Date: 20120928
  Serious: Yes (Other)
  Sender: FDA-Public Use
  Company Number: None

PATIENT
  Age: 59 Year
  Sex: Female
  Weight: 104.3273 kg

DRUGS (1)
  1. ATORVASTIN 10MG RANBAXY [Suspect]
     Indication: BLOOD CHOLESTEROL INCREASED
     Dates: start: 20120604, end: 20120710

REACTIONS (4)
  - MYALGIA [None]
  - HEPATIC PAIN [None]
  - RENAL DISORDER [None]
  - URINE OUTPUT DECREASED [None]
